FAERS Safety Report 9461875 (Version 4)
Quarter: 2013Q4

REPORT INFORMATION
  Report Type: Spontaneous
  Country: JP (occurrence: JP)
  Receive Date: 20130816
  Receipt Date: 20131014
  Transmission Date: 20140711
  Serious: Yes (Life-Threatening, Hospitalization, Other)
  Sender: FDA-Public Use
  Company Number: PHHY2013JP087766

PATIENT
  Age: 15 Year
  Sex: Male

DRUGS (3)
  1. TEGRETOL [Suspect]
     Indication: BENIGN ROLANDIC EPILEPSY
     Dosage: UNK UKN, UNK
  2. TEGRETOL [Suspect]
     Indication: SUICIDE ATTEMPT
     Dosage: 5400 MG, DAILY
     Route: 048
     Dates: start: 20130407, end: 20130407
  3. HALCION [Concomitant]
     Indication: INSOMNIA
     Dosage: 3.4 MG, UNK
     Route: 048
     Dates: start: 20130407, end: 20130407

REACTIONS (11)
  - Coma [Recovered/Resolved]
  - Drug level increased [Recovered/Resolved]
  - Intentional overdose [Unknown]
  - Asperger^s disorder [Unknown]
  - Decreased interest [Unknown]
  - Disturbance in social behaviour [Unknown]
  - Suicide attempt [Unknown]
  - Pneumonia aspiration [Recovered/Resolved]
  - Anxiety [Unknown]
  - Urinary incontinence [Unknown]
  - Tachycardia [Recovered/Resolved]
